FAERS Safety Report 8130510-5 (Version None)
Quarter: 2012Q1

REPORT INFORMATION
  Report Type: 
  Country: None (occurrence: None)
  Receive Date: 20120210
  Receipt Date: 20120206
  Transmission Date: 20120608
  Serious: Yes (Death)
  Sender: FDA-Public Use
  Company Number: KR-ASTRAZENECA-2012SE06571

PATIENT
  Age: 14 Year
  Sex: Female

DRUGS (9)
  1. PROPOFOL [Suspect]
     Dosage: FROM 1 MG/KG/H GRADUALLY INCREASED TO 7 MG/KG/H
     Route: 041
  2. LEVETIRACETAM [Concomitant]
     Indication: CONVULSION
  3. MIDAZOLAM [Concomitant]
     Dosage: REDUCED DOSE
  4. CARBAMAZEPINE [Concomitant]
     Indication: CONVULSION
  5. PHENYTOIN [Concomitant]
     Indication: STATUS EPILEPTICUS
     Route: 042
  6. TOPIRAMATE [Concomitant]
     Indication: CONVULSION
  7. PROPOFOL [Suspect]
     Indication: CONVULSION
     Route: 042
  8. VALPROATE SODIUM [Concomitant]
     Indication: CONVULSION
  9. MIDAZOLAM [Concomitant]
     Dosage: 0.1 MG/KG/H THEN INCREASED TO 2 MG/KG/H

REACTIONS (1)
  - PROPOFOL INFUSION SYNDROME [None]
